FAERS Safety Report 4987678-9 (Version None)
Quarter: 2006Q2

REPORT INFORMATION
  Report Type: 
  Country: None (occurrence: None)
  Receive Date: 20060426
  Receipt Date: 20060413
  Transmission Date: 20061013
  Serious: Yes (Death)
  Sender: FDA-Public Use
  Company Number: MEDI-0004081

PATIENT
  Age: 17 Month
  Sex: Male
  Weight: 8.5 kg

DRUGS (4)
  1. SYNAGIS [Suspect]
     Indication: ANTIVIRAL PROPHYLAXIS
     Dosage: 12 MG, 1 IN 30 D, INTRAMUSCULAR
     Route: 030
     Dates: start: 20051101, end: 20051206
  2. SYNAGIS [Suspect]
     Indication: ANTIVIRAL PROPHYLAXIS
     Dosage: 12 MG, 1 IN 30 D, INTRAMUSCULAR
     Route: 030
     Dates: start: 20051101
  3. SYNAGIS [Suspect]
  4. SALBUTAMOL (SALBUTAMOL) [Concomitant]

REACTIONS (1)
  - PNEUMONIA ASPIRATION [None]
